FAERS Safety Report 4651232-9 (Version None)
Quarter: 2005Q2

REPORT INFORMATION
  Report Type: 
  Country: None (occurrence: None)
  Receive Date: 20050503
  Receipt Date: 20050428
  Transmission Date: 20051028
  Serious: Yes (Other)
  Sender: FDA-Public Use
  Company Number: PHNU2005DE01793

PATIENT
  Sex: Female

DRUGS (1)
  1. ZOMETA [Suspect]
     Dosage: 1 DF, QMO
     Route: 042
     Dates: start: 20020101, end: 20040401

REACTIONS (5)
  - BONE DEBRIDEMENT [None]
  - BONE DISORDER [None]
  - DENTAL PROSTHESIS USER [None]
  - IMPAIRED HEALING [None]
  - TOOTH EXTRACTION [None]
